FAERS Safety Report 12780423 (Version 1)
Quarter: 2016Q3

REPORT INFORMATION
  Report Type: Spontaneous
  Country: DK (occurrence: DK)
  Receive Date: 20160926
  Receipt Date: 20160926
  Transmission Date: 20161109
  Serious: Yes (Hospitalization, Other)
  Sender: FDA-Public Use
  Company Number: DK-TEVA-460224ISR

PATIENT
  Age: 66 Year
  Sex: Male

DRUGS (7)
  1. PIROM [Suspect]
     Active Substance: PIROXICAM
     Indication: PAIN
     Route: 065
  2. SULFASALAZIN ^MEDAC^ [Concomitant]
     Indication: RHEUMATOID ARTHRITIS
     Route: 048
     Dates: start: 20130422
  3. IPREN [Suspect]
     Active Substance: IBUPROFEN
     Indication: PAIN
     Route: 065
  4. EMTHEXATE [Suspect]
     Active Substance: METHOTREXATE
     Indication: RHEUMATOID ARTHRITIS
     Route: 065
     Dates: start: 20130701, end: 20130930
  5. ARAVA [Suspect]
     Active Substance: LEFLUNOMIDE
     Indication: RHEUMATOID ARTHRITIS
     Route: 048
     Dates: start: 201311, end: 201311
  6. FOLIMET [Concomitant]
     Route: 065
  7. PAMOL [Concomitant]
     Active Substance: ACETAMINOPHEN
     Indication: PAIN
     Route: 065

REACTIONS (8)
  - Bone marrow failure [Unknown]
  - Neuralgia [Not Recovered/Not Resolved]
  - Sensory disturbance [Not Recovered/Not Resolved]
  - Thrombocytopenia [Recovered/Resolved]
  - Polyneuropathy [Unknown]
  - Nail discolouration [Unknown]
  - Hypoaesthesia [Not Recovered/Not Resolved]
  - Onychoclasis [Unknown]

NARRATIVE: CASE EVENT DATE: 20130930
